FAERS Safety Report 25736985 (Version 1)
Quarter: 2025Q3

REPORT INFORMATION
  Report Type: Spontaneous
  Country: EU (occurrence: EU)
  Receive Date: 20250828
  Receipt Date: 20250828
  Transmission Date: 20251021
  Serious: Yes (Other)
  Sender: MYLAN
  Company Number: None

PATIENT
  Age: 54 Year
  Sex: Male
  Weight: 112 kg

DRUGS (2)
  1. METFORMIN [Suspect]
     Active Substance: METFORMIN HYDROCHLORIDE
     Indication: Hyperglycaemia
     Dosage: 1000 MILLIGRAM, BID (12 HOURS)
     Dates: start: 2019
  2. CANDESARTAN [Concomitant]
     Active Substance: CANDESARTAN
     Indication: Hypertension
     Dosage: 32 MILLIGRAM, QD
     Dates: start: 2012

REACTIONS (11)
  - Lactic acidosis [Not Recovered/Not Resolved]
  - Lactose intolerance [Not Recovered/Not Resolved]
  - Concomitant disease aggravated [Not Recovered/Not Resolved]
  - Arthritis [Unknown]
  - Myositis [Unknown]
  - Dermatitis [Unknown]
  - Retching [Unknown]
  - Gastrointestinal disorder [Unknown]
  - Waist circumference decreased [Unknown]
  - Infrequent bowel movements [Unknown]
  - Nausea [Unknown]

NARRATIVE: CASE EVENT DATE: 20190101
